FAERS Safety Report 9770723 (Version 1)
Quarter: 2013Q4

REPORT INFORMATION
  Report Type: Spontaneous
  Country: US (occurrence: US)
  Receive Date: 20131218
  Receipt Date: 20131218
  Transmission Date: 20140711
  Serious: No
  Sender: FDA-Public Use
  Company Number: US-PFIZER INC-2013361925

PATIENT
  Sex: Male

DRUGS (2)
  1. LYRICA [Suspect]
     Indication: POST HERPETIC NEURALGIA
     Dosage: 125 MG, UNK
     Dates: start: 20131111, end: 20131121
  2. LYRICA [Suspect]
     Dosage: 300 MG, UNK
     Dates: start: 20131121

REACTIONS (3)
  - Eye pain [Recovered/Resolved]
  - Facial pain [Unknown]
  - Pain of skin [Unknown]
